FAERS Safety Report 9295631 (Version 1)
Quarter: 2013Q1

REPORT INFORMATION
  Report Type: Spontaneous
  Country: US (occurrence: None)
  Receive Date: 20121220
  Receipt Date: 20121220
  Transmission Date: 20140127
  Serious: Yes (Other)
  Sender: FDA-Public Use
  Company Number: 1110USA02968

PATIENT
  Age: 48 Year
  Sex: Male

DRUGS (2)
  1. ZETIA [Suspect]
     Indication: BLOOD CHOLESTEROL INCREASED
     Dosage: UNK MG, QD, ORAL
     Route: 048
     Dates: start: 200701, end: 200712
  2. INSULIN ( INSULIN) [Concomitant]

REACTIONS (2)
  - Back pain [None]
  - Diarrhoea [None]
